FAERS Safety Report 8282384 (Version 3)
Quarter: 2013Q1

REPORT INFORMATION
  Report Type: Spontaneous
  Country: US (occurrence: None)
  Receive Date: 20111206
  Receipt Date: 20121106
  Transmission Date: 20140127
  Serious: Yes (Hospitalization, Other)
  Sender: FDA-Public Use
  Company Number: 2011-4698

PATIENT
  Age: 7 Year
  Sex: Male
  Weight: 20.1 kg

DRUGS (1)
  1. INCRELEX [Suspect]
     Indication: PRIMARY INSULIN LIKE GROWTH FACTOR-1 DEFICIENCY
     Dosage: (109.45 UG/KG,2 IN 1 D)
     Route: 058
     Dates: start: 20110517, end: 201105

REACTIONS (10)
  - Anaemia [None]
  - Headache [None]
  - Pyrexia [None]
  - Mouth ulceration [None]
  - Tic [None]
  - Pharyngitis streptococcal [None]
  - Paediatric autoimmune neuropsychiatric disorders associated with streptococcal infection [None]
  - Post procedural haemorrhage [None]
  - Ocular hyperaemia [None]
  - Tonsillar hypertrophy [None]
